FAERS Safety Report 5383701-0 (Version None)
Quarter: 2007Q3

REPORT INFORMATION
  Report Type: 
  Country: None (occurrence: None)
  Receive Date: 20070706
  Receipt Date: 20070629
  Transmission Date: 20080115
  Serious: Yes (Death)
  Sender: FDA-Public Use
  Company Number: 20073885

PATIENT
  Age: 48 Year
  Sex: Female

DRUGS (5)
  1. LIORESAL [Suspect]
     Indication: MUSCLE SPASTICITY
     Dosage: 900 MCG, DAILY, INTRATHECAL
     Route: 037
  2. MORPHINE SULFATE [Concomitant]
  3. CLONIDINE [Concomitant]
  4. BUPIVACAINE [Concomitant]
  5. FENTANYL TRANSDERMAL SYSTEM [Concomitant]

REACTIONS (1)
  - CANCER PAIN [None]
